FAERS Safety Report 7114626-8 (Version None)
Quarter: 2010Q4

REPORT INFORMATION
  Report Type: 
  Country: None (occurrence: None)
  Receive Date: 20101121
  Receipt Date: 20101108
  Transmission Date: 20110411
  Serious: Yes (Hospitalization)
  Sender: FDA-Public Use
  Company Number: FR-ELI_LILLY_AND_COMPANY-FR201011002132

PATIENT
  Age: 52 Year
  Sex: Female

DRUGS (4)
  1. CYMBALTA [Suspect]
     Indication: BIPOLAR I DISORDER
     Dosage: UNK, UNKNOWN
     Route: 048
     Dates: start: 20100930, end: 20101024
  2. RISPERDAL [Concomitant]
     Indication: BIPOLAR I DISORDER
     Route: 048
     Dates: start: 20101002, end: 20101024
  3. THERALENE [Concomitant]
     Indication: BIPOLAR I DISORDER
     Route: 048
  4. NOCTAMIDE [Concomitant]
     Indication: BIPOLAR I DISORDER
     Route: 048

REACTIONS (1)
  - CHOLESTATIC LIVER INJURY [None]
